FAERS Safety Report 5340324-7 (Version None)
Quarter: 2007Q2

REPORT INFORMATION
  Report Type: 
  Country: None (occurrence: None)
  Receive Date: 20070531
  Receipt Date: 20070521
  Transmission Date: 20071010
  Serious: Yes (Death, Hospitalization)
  Sender: FDA-Public Use
  Company Number: US-ROCHE-492371

PATIENT
  Age: 82 Year
  Sex: Male
  Weight: 68.6 kg

DRUGS (22)
  1. CAPECITABINE [Suspect]
     Dosage: GIVEN ON DAYS 1-8 EVERY TWO WEEKS. FORM REPORTED AS PILL.
     Route: 048
     Dates: start: 20070316, end: 20070331
  2. BEVACIZUMAB [Suspect]
     Dosage: GIVEN ON DAY 1 EVERY TWO WEEKS. FORM REPORTED AS INFUSION.
     Route: 042
     Dates: start: 20070316, end: 20070329
  3. OXALIPLATIN [Suspect]
     Dosage: GIVEN ON DAY 1 EVERY TWO WEEKS. FORM REPORTED AS INFUSION.
     Route: 042
     Dates: start: 20070316, end: 20070329
  4. ASPIRIN [Concomitant]
     Dosage: TOTAL DAILY DOSE REPORTED AS 325.
     Dates: start: 20070305, end: 20070420
  5. MULTIVITAMIN NOS [Concomitant]
     Dates: start: 20000101, end: 20070404
  6. GLUCOSAMINE [Concomitant]
     Dosage: DRUG REPORTED AS GLUCOSAMIN COMPLEX.
     Dates: start: 20000101, end: 20070404
  7. LECITHIN [Concomitant]
     Dates: start: 20000101, end: 20070404
  8. SAW PALMETTO [Concomitant]
     Dates: start: 19940101, end: 20070404
  9. METAMUCIL [Concomitant]
     Dates: start: 20000101, end: 20070404
  10. TUMS [Concomitant]
     Dates: start: 20000101, end: 20070404
  11. METOPROLOL SUCCINATE [Concomitant]
     Dates: start: 20000101, end: 20070404
  12. ZOCOR [Concomitant]
     Dates: start: 20020101, end: 20070404
  13. LOTREL [Concomitant]
     Dates: start: 20020101, end: 20070404
  14. PEPCID AC [Concomitant]
     Dates: start: 20020101, end: 20070404
  15. DECADRON [Concomitant]
     Dates: start: 20070316, end: 20070329
  16. ZOFRAN [Concomitant]
     Dates: start: 20070316, end: 20070329
  17. ATIVAN [Concomitant]
     Dates: start: 20070316, end: 20070316
  18. COMPAZINE [Concomitant]
     Dates: start: 20070316, end: 20070404
  19. EMLA [Concomitant]
     Dates: start: 20070316, end: 20070329
  20. UNSPECIFIED DRUG [Concomitant]
     Dosage: IV FLUIDS.
     Route: 042
     Dates: start: 20070404, end: 20070418
  21. IMODIUM [Concomitant]
     Dates: start: 20070404, end: 20070407
  22. FLAGYL [Concomitant]
     Dates: start: 20070404, end: 20070412

REACTIONS (2)
  - MUCOSAL INFLAMMATION [None]
  - MULTI-ORGAN FAILURE [None]
